FAERS Safety Report 19052656 (Version 2)
Quarter: 2022Q3

REPORT INFORMATION
  Report Type: Spontaneous
  Country: US (occurrence: US)
  Receive Date: 20210324
  Receipt Date: 20220909
  Transmission Date: 20221026
  Serious: Yes (Other)
  Sender: FDA-Public Use
  Company Number: US-SUN PHARMACEUTICAL INDUSTRIES LTD-2021R1-286996

PATIENT
  Age: 14 Year
  Sex: Female

DRUGS (3)
  1. PREDNISONE [Suspect]
     Active Substance: PREDNISONE
     Indication: Evans syndrome
     Dosage: 1 MILLIGRAM/KILOGRAM, DAILY
     Route: 065
  2. PREDNISONE [Suspect]
     Active Substance: PREDNISONE
     Dosage: UNK (TAPER)
     Route: 065
  3. PREDNISONE [Suspect]
     Active Substance: PREDNISONE
     Dosage: 0.2 MILLIGRAM/KILOGRAM, DAILY
     Route: 065

REACTIONS (3)
  - Thrombotic microangiopathy [Unknown]
  - Steroid diabetes [Unknown]
  - Weight increased [Unknown]
